FAERS Safety Report 23061312 (Version 1)
Quarter: 2023Q4

REPORT INFORMATION
  Report Type: Spontaneous
  Country: PT (occurrence: PT)
  Receive Date: 20231013
  Receipt Date: 20231013
  Transmission Date: 20240110
  Serious: Yes (Other)
  Sender: FDA-Public Use
  Company Number: PT-GLAXOSMITHKLINE-PT2023EME134597

PATIENT
  Age: 30 Year
  Sex: Male

DRUGS (5)
  1. ACYCLOVIR [Suspect]
     Active Substance: ACYCLOVIR
     Indication: Headache
     Dosage: UNK
     Route: 065
  2. ACYCLOVIR [Suspect]
     Active Substance: ACYCLOVIR
     Indication: Phonophobia
  3. ACYCLOVIR [Suspect]
     Active Substance: ACYCLOVIR
     Indication: Abnormal behaviour
  4. ACYCLOVIR [Suspect]
     Active Substance: ACYCLOVIR
     Indication: Pyrexia
  5. ACYCLOVIR [Suspect]
     Active Substance: ACYCLOVIR
     Indication: Photophobia

REACTIONS (3)
  - Hallucination [Unknown]
  - Neurotoxicity [Unknown]
  - Renal impairment [Unknown]
